FAERS Safety Report 21042406 (Version 3)
Quarter: 2022Q3

REPORT INFORMATION
  Report Type: Report from Study
  Country: EG (occurrence: EG)
  Receive Date: 20220705
  Receipt Date: 20220912
  Transmission Date: 20221027
  Serious: Yes (Other)
  Sender: FDA-Public Use
  Company Number: EG-NOVARTISPH-NVSC2022EG149281

PATIENT
  Age: 48 Year
  Sex: Female

DRUGS (7)
  1. XOLAIR [Suspect]
     Active Substance: OMALIZUMAB
     Indication: Urticaria chronic
     Dosage: UNK, PRN, 1 XOLAIR 150MG INJECTION WHEN NEEDED
     Route: 058
     Dates: start: 202203, end: 202203
  2. XOLAIR [Suspect]
     Active Substance: OMALIZUMAB
     Indication: Asthma
     Dosage: UNK, QMO, FOR A DURATION OF 6-10 MONTHS, SECOND DOSE)(THE PATIENT WILL START ON THAT DOSE 01 JUL 202
     Route: 058
     Dates: start: 20220601
  3. XOLAIR [Suspect]
     Active Substance: OMALIZUMAB
     Indication: Sinusitis
     Dosage: UNK
     Route: 058
  4. CYCLOSPORINE [Suspect]
     Active Substance: CYCLOSPORINE
     Indication: Urticaria
     Dosage: 1 DOSAGE FORM, BID
     Route: 048
     Dates: start: 202201
  5. CYCLOSPORINE [Suspect]
     Active Substance: CYCLOSPORINE
     Dosage: 1 DOSAGE FORM, BID
     Route: 048
     Dates: start: 202202
  6. CYCLOSPORINE [Suspect]
     Active Substance: CYCLOSPORINE
     Dosage: TWO TABLETS IN THE MORNING AND TWO TABLETS AT NIGHT
     Route: 048
     Dates: start: 202204, end: 20220601
  7. NASACORT AQ [Concomitant]
     Active Substance: TRIAMCINOLONE ACETONIDE
     Indication: Sinusitis
     Dosage: 2 DOSAGE FORM, PRN (IN THE MORNING AND AT NIGHT)
     Route: 065
     Dates: start: 2020

REACTIONS (22)
  - Immune system disorder [Recovered/Resolved]
  - Coronavirus infection [Recovered/Resolved]
  - Anaemia [Unknown]
  - Serum ferritin abnormal [Unknown]
  - Ocular hyperaemia [Recovering/Resolving]
  - Dyspnoea [Recovering/Resolving]
  - Angioedema [Recovering/Resolving]
  - Urticaria [Not Recovered/Not Resolved]
  - Drug ineffective [Recovering/Resolving]
  - Red blood cell sedimentation rate increased [Unknown]
  - Helicobacter gastritis [Recovered/Resolved]
  - Pain [Recovered/Resolved]
  - Asthma [Recovered/Resolved]
  - Oropharyngeal pain [Recovering/Resolving]
  - Wheezing [Recovered/Resolved]
  - Drug hypersensitivity [Recovering/Resolving]
  - Nasopharyngitis [Recovered/Resolved]
  - Nasopharyngitis [Not Recovered/Not Resolved]
  - Anxiety [Unknown]
  - Stress [Unknown]
  - Incorrect route of product administration [Unknown]
  - Inappropriate schedule of product administration [Not Recovered/Not Resolved]

NARRATIVE: CASE EVENT DATE: 20220101
